FAERS Safety Report 9451284 (Version 2)
Quarter: 2014Q1

REPORT INFORMATION
  Report Type: Report from Study
  Country: GB (occurrence: GB)
  Receive Date: 20130809
  Receipt Date: 20140327
  Transmission Date: 20141002
  Serious: Yes (Hospitalization)
  Sender: FDA-Public Use
  Company Number: GB-009507513-1308GBR001874

PATIENT
  Age: 68 Year
  Sex: Female
  Weight: 76 kg

DRUGS (3)
  1. ALENDRONATE SODIUM [Suspect]
     Indication: OSTEOPOROSIS
     Dosage: UNK, QW
     Dates: start: 20120214
  2. MK-0000 (281) [Suspect]
     Indication: OSTEOPOROSIS
     Dosage: UNK
     Dates: start: 20120214
  3. CALCICHEW D3 [Concomitant]
     Indication: OSTEOPOROSIS
     Dosage: UNK, QD
     Dates: start: 20120214

REACTIONS (2)
  - Deep vein thrombosis [Recovered/Resolved with Sequelae]
  - Foot fracture [Not Recovered/Not Resolved]
